FAERS Safety Report 6558283-8 (Version None)
Quarter: 2010Q1

REPORT INFORMATION
  Report Type: 
  Country: None (occurrence: None)
  Receive Date: 20100128
  Receipt Date: 20100128
  Transmission Date: 20100710
  Serious: Yes (Life-Threatening, Hospitalization, Other)
  Sender: FDA-Public Use
  Company Number: None

PATIENT
  Age: 75 Year
  Sex: Female
  Weight: 52.1637 kg

DRUGS (1)
  1. TAMOXIFEN CITRATE [Suspect]
     Indication: NEOPLASM MALIGNANT
     Dosage: 10 MG TAB 2 - A DAY BY MOUTH
     Route: 048
     Dates: start: 20070901

REACTIONS (1)
  - CEREBROVASCULAR ACCIDENT [None]
